FAERS Safety Report 9356200 (Version 2)
Quarter: 2013Q3

REPORT INFORMATION
  Report Type: Spontaneous
  Country: FR (occurrence: FR)
  Receive Date: 20130619
  Receipt Date: 20130710
  Transmission Date: 20140515
  Serious: Yes (Life-Threatening, Hospitalization, Disabling, Other)
  Sender: FDA-Public Use
  Company Number: FR-PFIZER INC-2013180187

PATIENT
  Age: 87 Year
  Sex: Male

DRUGS (7)
  1. ACUILIX [Suspect]
     Indication: HYPERTENSION
     Dosage: QUINAPRIL HYDROCHLORIDE 20 MG/ HYDROCHLOROTHIZIDE 12.5 MG, DAILY
     Route: 048
  2. LANSOPRAZOLE [Suspect]
     Indication: GASTROOESOPHAGEAL REFLUX DISEASE
     Dosage: 1 DF, DAILY
     Route: 048
  3. XARELTO [Suspect]
     Indication: ARRHYTHMIA
     Dosage: 1 DF, DAILY
     Route: 048
  4. CRESTOR [Suspect]
     Indication: HYPERCHOLESTEROLAEMIA
     Dosage: 20 MG, DAILY
     Route: 048
  5. VESICARE [Suspect]
     Indication: HYPERTONIC BLADDER
     Dosage: 10 MG, DAILY
     Route: 048
  6. TOCOPHEROL [Suspect]
     Indication: PRODUCT USED FOR UNKNOWN INDICATION
     Dosage: 160 MG, DAILY
     Route: 048
  7. SERETIDE [Concomitant]
     Indication: CHRONIC OBSTRUCTIVE PULMONARY DISEASE
     Dosage: 2 DF DAILY

REACTIONS (7)
  - Ischaemic stroke [Recovered/Resolved with Sequelae]
  - Fall [Unknown]
  - Brain natriuretic peptide increased [Unknown]
  - Creatinine renal clearance decreased [Unknown]
  - Prothrombin time ratio decreased [Unknown]
  - Atrial fibrillation [Unknown]
  - Aphasia [None]
